FAERS Safety Report 9378554 (Version 2)
Quarter: 2013Q3

REPORT INFORMATION
  Report Type: Spontaneous
  Country: CL (occurrence: CL)
  Receive Date: 20130702
  Receipt Date: 20130708
  Transmission Date: 20140515
  Serious: Yes (Hospitalization, Other)
  Sender: FDA-Public Use
  Company Number: CL-009507513-1306CHL014142

PATIENT
  Sex: 0

DRUGS (3)
  1. ISENTRESS [Suspect]
     Indication: HIV INFECTION
     Dosage: UNK
     Route: 048
  2. MARAVIROC [Suspect]
     Indication: HIV INFECTION
     Dosage: UNK
  3. TENOFOVIR [Suspect]
     Indication: HIV INFECTION
     Dosage: UNK

REACTIONS (2)
  - Endotracheal intubation [Not Recovered/Not Resolved]
  - Spinal cord injury [Not Recovered/Not Resolved]
